FAERS Safety Report 12408849 (Version 2)
Quarter: 2016Q2

REPORT INFORMATION
  Report Type: Report from Study
  Country: US (occurrence: US)
  Receive Date: 20160526
  Receipt Date: 20160601
  Transmission Date: 20160815
  Serious: Yes (Hospitalization)
  Sender: FDA-Public Use
  Company Number: US-JNJFOC-20160421635

PATIENT
  Age: 69 Year
  Sex: Female
  Weight: 59 kg

DRUGS (5)
  1. PRILOSEC [Concomitant]
     Active Substance: OMEPRAZOLE MAGNESIUM
  2. GLUCOSAMINE CHONDROITIN SULFATE [Concomitant]
  3. CALCIUM + VITAMIN D3 [Concomitant]
     Active Substance: CALCIUM CARBONATE\CHOLECALCIFEROL
  4. IMBRUVICA [Suspect]
     Active Substance: IBRUTINIB
     Indication: NON-HODGKIN^S LYMPHOMA
     Route: 048
     Dates: start: 20160405
  5. IMBRUVICA [Suspect]
     Active Substance: IBRUTINIB
     Indication: NON-HODGKIN^S LYMPHOMA
     Route: 048
     Dates: start: 20160316, end: 20160329

REACTIONS (6)
  - Product use issue [Not Recovered/Not Resolved]
  - Respiratory failure [Recovered/Resolved]
  - Diarrhoea [Recovering/Resolving]
  - Gastrointestinal haemorrhage [Recovered/Resolved]
  - Off label use [Not Recovered/Not Resolved]
  - Streptococcal sepsis [Recovered/Resolved]

NARRATIVE: CASE EVENT DATE: 2016
